FAERS Safety Report 8814582 (Version 1)
Quarter: 2012Q4

REPORT INFORMATION
  Report Type: Spontaneous
  Country: US (occurrence: None)
  Receive Date: 20120925
  Receipt Date: 20120925
  Transmission Date: 20130627
  Serious: Yes (Hospitalization)
  Sender: FDA-Public Use
  Company Number: 2012P1056903

PATIENT
  Age: 67 Year
  Sex: Female
  Weight: 79.38 kg

DRUGS (15)
  1. FENTANYL PATCH [Suspect]
     Indication: PAIN
     Dosage: 1 patch; q3d;tder
     Route: 062
  2. ARIMIDEX (NO PREF. NAME) [Suspect]
     Indication: CANCER
  3. KLONOPIN [Concomitant]
  4. CITALOPRAM [Concomitant]
  5. TRIMETHORPRIM [Concomitant]
  6. METFORMIN [Concomitant]
  7. KLOR-CON [Concomitant]
  8. METOPROLOL [Concomitant]
  9. DEMADEX [Concomitant]
  10. ISOSORB MONO [Concomitant]
  11. NAPROXEN [Concomitant]
  12. LOTREL [Concomitant]
  13. FLEXERIL [Concomitant]
  14. LORTAB [Concomitant]
  15. ASPIRIN [Concomitant]

REACTIONS (5)
  - Drug effect decreased [None]
  - Breast cancer female [None]
  - Hot flush [None]
  - Haemoglobin decreased [None]
  - Product adhesion issue [None]
